FAERS Safety Report 6086499-6 (Version None)
Quarter: 2009Q1

REPORT INFORMATION
  Report Type: 
  Country: None (occurrence: None)
  Receive Date: 20090223
  Receipt Date: 20090212
  Transmission Date: 20090719
  Serious: Yes (Death, Other)
  Sender: FDA-Public Use
  Company Number: JP-JNJFOC-20081005470

PATIENT
  Sex: Male
  Weight: 43 kg

DRUGS (13)
  1. ITRIZOLE [Suspect]
     Route: 042
  2. ITRIZOLE [Suspect]
     Indication: SYSTEMIC MYCOSIS
     Route: 042
  3. FUNGUARD [Concomitant]
     Route: 042
  4. FULCALIQ 3 [Concomitant]
     Indication: MALNUTRITION
     Route: 042
  5. MINERALIN [Concomitant]
     Indication: MALNUTRITION
     Route: 042
  6. PANTOL [Concomitant]
     Indication: CONSTIPATION
     Route: 042
  7. ASPARA POTASSIUM [Concomitant]
     Indication: HYPOKALAEMIA
     Route: 042
  8. REMINARON [Concomitant]
     Indication: DISSEMINATED INTRAVASCULAR COAGULATION
     Route: 042
  9. PREDONINE [Concomitant]
     Indication: ORGANISING PNEUMONIA
     Route: 042
  10. FINIBAX [Concomitant]
     Indication: PNEUMONIA BACTERIAL
     Route: 042
  11. BISOLVON [Concomitant]
     Indication: PNEUMONIA BACTERIAL
     Route: 042
  12. PROPOFOL [Concomitant]
     Indication: SEDATION
     Route: 042
  13. TAKEPRON [Concomitant]
     Indication: PROPHYLAXIS
     Route: 048

REACTIONS (3)
  - LIVER DISORDER [None]
  - PNEUMONIA [None]
  - RENAL IMPAIRMENT [None]
